FAERS Safety Report 9294511 (Version 2)
Quarter: 2013Q3

REPORT INFORMATION
  Report Type: Spontaneous
  Country: US (occurrence: None)
  Receive Date: 20121227
  Receipt Date: 20130724
  Transmission Date: 20140515
  Serious: Yes (Other)
  Sender: FDA-Public Use
  Company Number: PHEH2012US021681

PATIENT
  Age: 59 Year
  Sex: Male

DRUGS (1)
  1. AFINITOR [Suspect]
     Route: 048
     Dates: start: 20120207, end: 20121102

REACTIONS (1)
  - Blood glucose increased [None]
